FAERS Safety Report 4588031-2 (Version None)
Quarter: 2005Q1

REPORT INFORMATION
  Report Type: 
  Country: None (occurrence: None)
  Receive Date: 20050216
  Receipt Date: 20050201
  Transmission Date: 20050727
  Serious: Yes (Hospitalization, Other)
  Sender: FDA-Public Use
  Company Number: GBS050216543

PATIENT
  Age: 65 Year
  Sex: Female

DRUGS (7)
  1. FLUOXETINE [Suspect]
     Indication: DEPRESSION
     Dosage: 20 MG
     Dates: start: 19970101, end: 20041229
  2. CYCLIZINE [Concomitant]
  3. CIPROFLOXACIN [Concomitant]
  4. ASPIRIN [Concomitant]
  5. PROPANTHELINE [Concomitant]
  6. OXYBUTYNIN [Concomitant]
  7. MOVICOL [Concomitant]

REACTIONS (5)
  - CHOREA [None]
  - DYSTONIA [None]
  - NAUSEA [None]
  - RENAL FAILURE ACUTE [None]
  - URETERIC DIVERSION OPERATION [None]
